FAERS Safety Report 7539059-1 (Version None)
Quarter: 2011Q2

REPORT INFORMATION
  Report Type: 
  Country: None (occurrence: None)
  Receive Date: 20110610
  Receipt Date: 20010911
  Transmission Date: 20111010
  Serious: Yes (Death)
  Sender: FDA-Public Use
  Company Number: PHBS2001CA09006

PATIENT
  Sex: Male

DRUGS (5)
  1. EXELON [Suspect]
     Indication: DEMENTIA ALZHEIMER'S TYPE
     Route: 048
     Dates: start: 20010717, end: 20010903
  2. FERROUS GLUCONATE [Concomitant]
  3. CALCIUM CARBONATE [Concomitant]
  4. ATACAND [Concomitant]
  5. PREVACID [Concomitant]

REACTIONS (1)
  - CEREBROVASCULAR ACCIDENT [None]
